FAERS Safety Report 5445984-8 (Version None)
Quarter: 2007Q3

REPORT INFORMATION
  Report Type: 
  Country: None (occurrence: None)
  Receive Date: 20070907
  Receipt Date: 20070829
  Transmission Date: 20080115
  Serious: Yes (Disabling, Other)
  Sender: FDA-Public Use
  Company Number: IN-JNJFOC-20070604417

PATIENT
  Age: 8 Year
  Sex: Male
  Weight: 24 kg

DRUGS (3)
  1. OFLOXACIN [Suspect]
     Indication: TYPHOID FEVER
     Route: 048
  2. OFLOXACIN [Suspect]
     Route: 048
  3. PARACETAMOL [Concomitant]
     Indication: PYREXIA
     Route: 065

REACTIONS (2)
  - ARTHRALGIA [None]
  - ARTHROPATHY [None]
